FAERS Safety Report 11175012 (Version 3)
Quarter: 2015Q2

REPORT INFORMATION
  Report Type: Spontaneous
  Country: US (occurrence: US)
  Receive Date: 20150609
  Receipt Date: 20150630
  Transmission Date: 20150821
  Serious: No
  Sender: FDA-Public Use
  Company Number: US-PFIZER INC-2015189719

PATIENT
  Age: 53 Year
  Sex: Female

DRUGS (4)
  1. TIROSINT [Concomitant]
     Active Substance: LEVOTHYROXINE SODIUM
     Dosage: UNK
     Dates: start: 201305
  2. CORTEF [Suspect]
     Active Substance: HYDROCORTISONE
     Indication: ADRENAL INSUFFICIENCY
     Dosage: 15 MG MORNING, 10 MG AFTERNOON, 2X/DAY
     Dates: start: 201110
  3. FLUDROCORTISON [Concomitant]
     Active Substance: FLUDROCORTISONE
     Dosage: UNK
     Dates: start: 201105
  4. CORTEF [Suspect]
     Active Substance: HYDROCORTISONE
     Dosage: 15 MG MORNING, 10 MG AFTERNOON, 2X/DAY
     Dates: start: 201505

REACTIONS (10)
  - Product quality issue [Unknown]
  - Arthralgia [Not Recovered/Not Resolved]
  - Musculoskeletal stiffness [Not Recovered/Not Resolved]
  - Fatigue [Not Recovered/Not Resolved]
  - Wrong technique in drug usage process [Unknown]
  - Influenza like illness [Not Recovered/Not Resolved]
  - Pain [Not Recovered/Not Resolved]
  - Malaise [Not Recovered/Not Resolved]
  - Movement disorder [Not Recovered/Not Resolved]
  - Drug ineffective [Unknown]

NARRATIVE: CASE EVENT DATE: 20150102
